FAERS Safety Report 15965386 (Version 2)
Quarter: 2019Q1

REPORT INFORMATION
  Report Type: Spontaneous
  Country: FR (occurrence: FR)
  Receive Date: 20190215
  Receipt Date: 20190330
  Transmission Date: 20190418
  Serious: Yes (Hospitalization)
  Sender: FDA-Public Use
  Company Number: FR-ACCORD-107366

PATIENT
  Age: 64 Year
  Sex: Female
  Weight: 100 kg

DRUGS (8)
  1. SOLIAN [Suspect]
     Active Substance: AMISULPRIDE
     Indication: PSYCHOTIC DISORDER
     Dosage: STRENGTH 400 MG
     Route: 048
     Dates: start: 201505
  2. NOVONORM [Suspect]
     Active Substance: REPAGLINIDE
     Indication: TYPE 2 DIABETES MELLITUS
     Dosage: 1 MG
     Route: 048
     Dates: start: 2015
  3. LOGIMAX [Suspect]
     Active Substance: FELODIPINE\METOPROLOL SUCCINATE
     Indication: HYPERTENSION
     Dosage: 5 MG/ 47.5 MG
     Route: 048
     Dates: start: 2015
  4. KARDEGIC [Suspect]
     Active Substance: ASPIRIN DL-LYSINE
     Indication: PROPHYLAXIS
     Dosage: IN SACHET-DOSE
     Route: 048
  5. JANUMET [Suspect]
     Active Substance: METFORMIN HYDROCHLORIDE\SITAGLIPTIN PHOSPHATE
     Indication: TYPE 2 DIABETES MELLITUS
     Dosage: 50 MG/ 1000 MG
     Route: 048
     Dates: start: 2015
  6. XANAX [Suspect]
     Active Substance: ALPRAZOLAM
     Indication: PSYCHOTIC DISORDER
     Dosage: 0.50 MG, SCORED TABLET
     Route: 048
     Dates: start: 201505
  7. PRAVASTATIN. [Suspect]
     Active Substance: PRAVASTATIN
     Indication: HYPERCHOLESTEROLAEMIA
     Route: 048
  8. PARKINANE [Suspect]
     Active Substance: TRIHEXYPHENIDYL HYDROCHLORIDE
     Indication: PARKINSONISM
     Route: 048
     Dates: start: 201702

REACTIONS (2)
  - Eczema [Not Recovered/Not Resolved]
  - Eosinophilia [Not Recovered/Not Resolved]

NARRATIVE: CASE EVENT DATE: 201712
